FAERS Safety Report 23145952 (Version 1)
Quarter: 2023Q4

REPORT INFORMATION
  Report Type: Spontaneous
  Country: FR (occurrence: FR)
  Receive Date: 20231104
  Receipt Date: 20231104
  Transmission Date: 20240110
  Serious: Yes (Death, Life-Threatening, Hospitalization, Other)
  Sender: FDA-Public Use
  Company Number: FR-EMA-DD-20231025-7291049-150024

PATIENT
  Age: 92 Year
  Sex: Female
  Weight: 79 kg

DRUGS (11)
  1. AMOXICILLIN\CLAVULANIC ACID [Suspect]
     Active Substance: AMOXICILLIN\CLAVULANIC ACID
     Indication: Localised infection
     Dosage: UNK
     Route: 030
     Dates: start: 201710, end: 201710
  2. AMOXICILLIN\CLAVULANIC ACID [Suspect]
     Active Substance: AMOXICILLIN\CLAVULANIC ACID
     Indication: Erysipelas
  3. CEFTRIAXONE [Suspect]
     Active Substance: CEFTRIAXONE\CEFTRIAXONE SODIUM
     Indication: Erysipelas
     Dosage: UNK
     Route: 030
     Dates: start: 201710, end: 201710
  4. CEFTRIAXONE [Suspect]
     Active Substance: CEFTRIAXONE\CEFTRIAXONE SODIUM
     Indication: Localised infection
  5. AUGMENTIN [Suspect]
     Active Substance: AMOXICILLIN\CLAVULANATE POTASSIUM
     Indication: Erysipelas
     Dosage: UNK
     Route: 048
     Dates: start: 201710, end: 201710
  6. CLINDAMYCIN [Suspect]
     Active Substance: CLINDAMYCIN
     Indication: Localised infection
     Dosage: UNK
     Route: 030
     Dates: start: 201710, end: 201710
  7. CLINDAMYCIN [Suspect]
     Active Substance: CLINDAMYCIN
     Indication: Erysipelas
  8. WARFARIN SODIUM [Suspect]
     Active Substance: WARFARIN SODIUM
     Indication: Atrial fibrillation
     Dosage: UNK
     Route: 048
     Dates: end: 20171024
  9. CLINDAMYCIN HYDROCHLORIDE [Suspect]
     Active Substance: CLINDAMYCIN HYDROCHLORIDE
     Indication: Erysipelas
     Dosage: UNK
     Route: 048
     Dates: start: 201710, end: 201710
  10. WARFARIN [Concomitant]
     Active Substance: WARFARIN
     Indication: Pulmonary embolism
     Dosage: UNK
     Route: 030
     Dates: start: 20171024
  11. WARFARIN [Concomitant]
     Active Substance: WARFARIN
     Indication: Atrial fibrillation

REACTIONS (6)
  - Haemorrhage [Fatal]
  - Coagulation factor decreased [Fatal]
  - Haematoma [Fatal]
  - Haemorrhagic diathesis [Fatal]
  - Anti factor V antibody positive [Fatal]
  - Coagulation factor deficiency [Fatal]

NARRATIVE: CASE EVENT DATE: 20171024
